FAERS Safety Report 23591356 (Version 2)
Quarter: 2024Q1

REPORT INFORMATION
  Report Type: Spontaneous
  Country: US (occurrence: US)
  Receive Date: 20240304
  Receipt Date: 20240314
  Transmission Date: 20240409
  Serious: Yes (Other)
  Sender: FDA-Public Use
  Company Number: US-AMNEAL PHARMACEUTICALS-2024-AMRX-00695

PATIENT
  Age: 65 Year
  Sex: Female
  Weight: 52.154 kg

DRUGS (5)
  1. HYDROXYCHLOROQUINE SULFATE [Suspect]
     Active Substance: HYDROXYCHLOROQUINE SULFATE
     Indication: Sjogren^s syndrome
     Dosage: 2 TABLETS, 2X/DAY
     Route: 048
     Dates: start: 20210401, end: 20240222
  2. CELEBREX [Concomitant]
     Active Substance: CELECOXIB
     Indication: Product used for unknown indication
     Dosage: (200 MG) 1 CAPSULES, 1X/DAY
     Route: 048
  3. AMLODIPINE [Concomitant]
     Active Substance: AMLODIPINE BESYLATE
     Indication: Product used for unknown indication
     Dosage: (4 MG) 1 TABLETS, 1X/DAY
     Route: 048
  4. CYMBALTA [Concomitant]
     Active Substance: DULOXETINE HYDROCHLORIDE
     Indication: Product used for unknown indication
     Dosage: (16 MG) 1 CAPSULES, 1X/DAY
     Route: 048
  5. LEVOTHYROXINE [Concomitant]
     Active Substance: LEVOTHYROXINE\LEVOTHYROXINE SODIUM
     Indication: Product used for unknown indication
     Dosage: 1 TABLETS, 1X/DAY
     Route: 048

REACTIONS (13)
  - Deafness [Unknown]
  - Retinal injury [Not Recovered/Not Resolved]
  - Night blindness [Not Recovered/Not Resolved]
  - Photopsia [Not Recovered/Not Resolved]
  - Eye irritation [Unknown]
  - Gait disturbance [Unknown]
  - Burning sensation [Unknown]
  - Vision blurred [Not Recovered/Not Resolved]
  - Visual field defect [Not Recovered/Not Resolved]
  - Tinnitus [Unknown]
  - Vertigo [Unknown]
  - Fatigue [Unknown]
  - Muscular weakness [Unknown]

NARRATIVE: CASE EVENT DATE: 20230901
